FAERS Safety Report 8280887-5 (Version None)
Quarter: 2012Q2

REPORT INFORMATION
  Report Type: 
  Country: None (occurrence: None)
  Receive Date: 20120412
  Receipt Date: 20120409
  Transmission Date: 20120825
  Serious: Yes (Death, Hospitalization)
  Sender: FDA-Public Use
  Company Number: PT-BAXTER-2012BH004762

PATIENT
  Sex: Female

DRUGS (1)
  1. PHYSIONEAL 40 GLUCOSE 2,27% P/V / 22,7 MG/ML [Suspect]
     Route: 033
     Dates: start: 20110401, end: 20120215

REACTIONS (5)
  - DEATH [None]
  - DECREASED APPETITE [None]
  - NAUSEA [None]
  - ASTHENIA [None]
  - HYPERCALCAEMIA [None]
